FAERS Safety Report 4817435-5 (Version None)
Quarter: 2005Q4

REPORT INFORMATION
  Report Type: 
  Country: None (occurrence: None)
  Receive Date: 20051031
  Receipt Date: 20051019
  Transmission Date: 20060501
  Serious: Yes (Other)
  Sender: FDA-Public Use
  Company Number: 2005145165

PATIENT
  Age: 77 Year
  Sex: Male

DRUGS (2)
  1. ZYVOX [Suspect]
     Indication: STAPHYLOCOCCAL INFECTION
     Dosage: 1200 MG (600 MG, BID), INTRAVENOUS
     Route: 042
     Dates: start: 20041129
  2. CIPROXAN (CIPROFLOXACIN HYDROCHLORIDE) (CIPROFLOXACIN HYDROCHLORIDE) [Concomitant]

REACTIONS (3)
  - DRUG INEFFECTIVE [None]
  - PANCREATITIS ACUTE [None]
  - PSEUDOMONAS INFECTION [None]
